FAERS Safety Report 13938935 (Version 1)
Quarter: 2017Q3

REPORT INFORMATION
  Report Type: Spontaneous
  Country: IT (occurrence: IT)
  Receive Date: 20170906
  Receipt Date: 20170906
  Transmission Date: 20171127
  Serious: Yes (Death)
  Sender: FDA-Public Use
  Company Number: IT-CIPLA LTD.-2017IT15804

PATIENT

DRUGS (3)
  1. LEVETIRACETAM. [Suspect]
     Active Substance: LEVETIRACETAM
     Indication: MYOCLONIC EPILEPSY
     Route: 065
  2. PHENITOINE [Suspect]
     Active Substance: PHENYTOIN
     Indication: MYOCLONIC EPILEPSY
     Route: 065
  3. PHENOBARBITAL. [Suspect]
     Active Substance: PHENOBARBITAL
     Indication: MYOCLONIC EPILEPSY
     Route: 065

REACTIONS (5)
  - Off label use [Fatal]
  - Sudden unexplained death in epilepsy [Fatal]
  - Tachycardia [Fatal]
  - Flushing [Fatal]
  - Hyperhidrosis [Fatal]
